FAERS Safety Report 5268275-7 (Version None)
Quarter: 2007Q1

REPORT INFORMATION
  Report Type: 
  Country: None (occurrence: None)
  Receive Date: 20070314
  Receipt Date: 20070314
  Transmission Date: 20070707
  Serious: Yes (Hospitalization)
  Sender: FDA-Public Use
  Company Number: None

PATIENT
  Age: 88 Year
  Sex: Female

DRUGS (4)
  1. BENAZEPRIL HYDROCHLORIDE [Suspect]
     Indication: CARDIAC FAILURE CONGESTIVE
     Dosage: 5 MG DAILY PO
     Route: 048
  2. SPIRONOLACTONE [Suspect]
     Indication: CARDIAC FAILURE CONGESTIVE
     Dosage: 12.5 MG DAILY PO
     Route: 048
  3. FUROSEMIDE [Concomitant]
  4. KCL SUPPLEMENT [Concomitant]

REACTIONS (3)
  - BRADYCARDIA [None]
  - HYPERKALAEMIA [None]
  - RENAL FAILURE ACUTE [None]
